FAERS Safety Report 20462310 (Version 1)
Quarter: 2022Q1

REPORT INFORMATION
  Report Type: Spontaneous
  Country: AT (occurrence: AT)
  Receive Date: 20220211
  Receipt Date: 20220211
  Transmission Date: 20220423
  Serious: Yes (Hospitalization)
  Sender: FDA-Public Use
  Company Number: AT-PFIZER INC-202200179442

PATIENT
  Age: 58 Year
  Sex: Female

DRUGS (2)
  1. GEMCITABINE HYDROCHLORIDE [Suspect]
     Active Substance: GEMCITABINE HYDROCHLORIDE
     Indication: Bladder cancer
     Dosage: UNK
     Dates: start: 20161114, end: 20170320
  2. CISPLATIN [Suspect]
     Active Substance: CISPLATIN
     Indication: Bladder cancer
     Dosage: UNK
     Dates: start: 20161114, end: 20170320

REACTIONS (15)
  - Thrombocytopenia [Unknown]
  - Leukopenia [Unknown]
  - Haemoglobinaemia [Unknown]
  - Fatigue [Unknown]
  - Nausea [Unknown]
  - Vertigo [Unknown]
  - Dyspnoea [Unknown]
  - Tremor [Unknown]
  - Asthenia [Unknown]
  - Decreased appetite [Unknown]
  - Urinary tract infection [Unknown]
  - Influenza like illness [Unknown]
  - Pyrexia [Unknown]
  - Headache [Unknown]
  - Abdominal pain [Unknown]
